FAERS Safety Report 9179253 (Version 2)
Quarter: 2013Q1

REPORT INFORMATION
  Report Type: Spontaneous
  Country: JP (occurrence: JP)
  Receive Date: 20130321
  Receipt Date: 20130327
  Transmission Date: 20140127
  Serious: Yes (Other)
  Sender: FDA-Public Use
  Company Number: JP-VERTEX PHARMACEUTICALS INC.-2013-003898

PATIENT
  Age: 57 Year
  Sex: Male

DRUGS (7)
  1. TELAVIC [Suspect]
     Indication: CHRONIC HEPATITIS C
     Dosage: 1500 MG, QW
     Route: 048
     Dates: start: 20130313, end: 20130315
  2. REBETOL [Suspect]
     Indication: CHRONIC HEPATITIS C
     Dosage: 800 MG, QD
     Route: 048
     Dates: start: 20130313, end: 20130315
  3. PEGINTRON [Suspect]
     Indication: CHRONIC HEPATITIS C
     Dosage: 1.5 ?G/KG, QW
     Route: 058
     Dates: start: 20130313, end: 20130315
  4. NESINA [Suspect]
     Indication: CONCOMITANT DISEASE PROGRESSION
     Dosage: 25 MG, QD
     Route: 048
  5. AMLODIPINE [Concomitant]
     Dosage: 5 MG, QD
     Route: 048
  6. GASTER D [Concomitant]
     Dosage: 20 MG, QD
     Route: 048
  7. ZOLPIDEM [Concomitant]
     Dosage: 10 MG, QD
     Route: 048

REACTIONS (1)
  - Drug eruption [Recovered/Resolved]
